FAERS Safety Report 7743541-1 (Version None)
Quarter: 2011Q3

REPORT INFORMATION
  Report Type: 
  Country: None (occurrence: None)
  Receive Date: 20110912
  Receipt Date: 20110902
  Transmission Date: 20111222
  Serious: Yes (Disabling)
  Sender: FDA-Public Use
  Company Number: FR-ROCHE-800685

PATIENT
  Age: 42 Year
  Sex: Male

DRUGS (2)
  1. COPEGUS [Suspect]
     Route: 048
     Dates: start: 20101118
  2. PEGASYS [Suspect]
     Route: 058
     Dates: start: 20101118

REACTIONS (1)
  - DEAFNESS [None]
